FAERS Safety Report 19759996 (Version 1)
Quarter: 2021Q3

REPORT INFORMATION
  Report Type: Spontaneous
  Country: CH (occurrence: CH)
  Receive Date: 20210830
  Receipt Date: 20210830
  Transmission Date: 20211014
  Serious: Yes (Other)
  Sender: FDA-Public Use
  Company Number: CH-GUERBET-CH-20210025

PATIENT
  Age: 47 Year
  Sex: Female
  Weight: 77 kg

DRUGS (3)
  1. IRFEN [Concomitant]
     Active Substance: IBUPROFEN
     Indication: PAIN
     Route: 065
     Dates: start: 20210224, end: 20210303
  2. NOVALGIN [Concomitant]
     Indication: PAIN
     Route: 065
     Dates: start: 20210224, end: 20210303
  3. DOTAREM [Suspect]
     Active Substance: GADOTERATE MEGLUMINE
     Indication: MAGNETIC RESONANCE IMAGING
     Route: 042
     Dates: start: 20210311, end: 20210311

REACTIONS (6)
  - Hepatic enzyme increased [Recovered/Resolved]
  - Abdominal pain upper [Unknown]
  - Chromaturia [Recovered/Resolved]
  - Gastritis [Unknown]
  - Pruritus [Recovering/Resolving]
  - Urticaria [Recovered/Resolved]

NARRATIVE: CASE EVENT DATE: 20210317
